FAERS Safety Report 26142861 (Version 1)
Quarter: 2025Q4

REPORT INFORMATION
  Report Type: Spontaneous
  Country: US (occurrence: US)
  Receive Date: 20251211
  Receipt Date: 20251211
  Transmission Date: 20260117
  Serious: No
  Sender: CELLTRION
  Company Number: US-CELLTRION INC.-2025US034646

PATIENT

DRUGS (2)
  1. ZYMFENTRA [Suspect]
     Active Substance: INFLIXIMAB-DYYB
     Indication: Product used for unknown indication
     Dosage: 120 MILLIGRAM PER MILLILITRE, PEN KIT - INJECT THE CONTENTS OF ONE DEVICE UNDER THE SKIN EVERY TWO W
     Route: 058
  2. ZYMFENTRA [Suspect]
     Active Substance: INFLIXIMAB-DYYB
     Dosage: WEEKLY
     Route: 058

REACTIONS (2)
  - Condition aggravated [Unknown]
  - Intentional product use issue [Unknown]
